FAERS Safety Report 5339657-X (Version None)
Quarter: 2007Q2

REPORT INFORMATION
  Report Type: 
  Country: None (occurrence: None)
  Receive Date: 20070404
  Receipt Date: 20060810
  Transmission Date: 20071010
  Serious: Yes (Other)
  Sender: FDA-Public Use
  Company Number: 2006097666

PATIENT
  Sex: 0

DRUGS (3)
  1. GEODON [Suspect]
     Indication: DRUG USE FOR UNKNOWN INDICATION
     Dosage: 160 MG (80 MG, 2 IN 1 D)
  2. DEPAKOTE [Concomitant]
  3. ATIVAN [Concomitant]

REACTIONS (1)
  - HEART RATE DECREASED [None]
